FAERS Safety Report 9736992 (Version 1)
Quarter: 2013Q4

REPORT INFORMATION
  Report Type: Spontaneous
  Country: US (occurrence: US)
  Receive Date: 20131206
  Receipt Date: 20131206
  Transmission Date: 20140711
  Serious: No
  Sender: FDA-Public Use
  Company Number: US-GILEAD-2009-0023149

PATIENT
  Age: 69 Year
  Sex: Male

DRUGS (8)
  1. LETAIRIS [Suspect]
     Indication: PULMONARY ARTERIAL HYPERTENSION
     Route: 048
     Dates: start: 200906, end: 200906
  2. LETAIRIS [Suspect]
     Route: 048
     Dates: start: 20080404, end: 200906
  3. LASIX [Concomitant]
  4. COUMADIN [Concomitant]
  5. COLCHICINE [Concomitant]
  6. K-DUR [Concomitant]
  7. CRESTOR [Concomitant]
  8. FLOMAX [Concomitant]

REACTIONS (1)
  - International normalised ratio fluctuation [Unknown]
